FAERS Safety Report 12539810 (Version 1)
Quarter: 2016Q3

REPORT INFORMATION
  Report Type: Spontaneous
  Country: US (occurrence: US)
  Receive Date: 20160708
  Receipt Date: 20160708
  Transmission Date: 20161109
  Serious: No
  Sender: FDA-Public Use
  Company Number: US-ACTAVIS-2016-01130

PATIENT
  Sex: Female

DRUGS (3)
  1. OXYCODONE (WATSON LABORATORIES) [Suspect]
     Active Substance: OXYCODONE
     Indication: COUGH
  2. LETROZOLE (ATLLC) [Suspect]
     Active Substance: LETROZOLE
     Indication: HORMONE THERAPY
     Dosage: 2.5 MG, DAILY
     Route: 048
     Dates: start: 20130805
  3. OXYCODONE (WATSON LABORATORIES) [Suspect]
     Active Substance: OXYCODONE
     Indication: PAIN
     Dosage: 5 MG, Q3-4 HOURS AS NEEDED
     Route: 048
     Dates: start: 20130826

REACTIONS (3)
  - Drug ineffective [Not Recovered/Not Resolved]
  - Myalgia [Unknown]
  - Arthralgia [Unknown]
